FAERS Safety Report 24587460 (Version 1)
Quarter: 2024Q4

REPORT INFORMATION
  Report Type: Report from Study
  Country: CA (occurrence: CA)
  Receive Date: 20241107
  Receipt Date: 20241107
  Transmission Date: 20250114
  Serious: Yes (Other)
  Sender: SANDOZ
  Company Number: CA-SANDOZ-SDZ2023CA065529

PATIENT
  Sex: Male

DRUGS (2)
  1. HYRIMOZ [Suspect]
     Active Substance: ADALIMUMAB-ADAZ
     Indication: Gout
     Dosage: 40 MG, QW, PRE-FILLED PEN
     Route: 058
     Dates: start: 20220601
  2. ALLOPURINOL [Concomitant]
     Active Substance: ALLOPURINOL
     Indication: Gout
     Route: 065

REACTIONS (5)
  - Road traffic accident [Unknown]
  - Dialysis [Unknown]
  - Unintentional use for unapproved indication [Unknown]
  - Product use in unapproved indication [Unknown]
  - Medication error [Unknown]
